FAERS Safety Report 13075311 (Version 1)
Quarter: 2016Q4

REPORT INFORMATION
  Report Type: Spontaneous
  Country: BE (occurrence: BE)
  Receive Date: 20161230
  Receipt Date: 20161230
  Transmission Date: 20170207
  Serious: Yes (Other)
  Sender: FDA-Public Use
  Company Number: BE-ASTELLAS-2016US050957

PATIENT
  Age: 62 Year
  Sex: Male

DRUGS (2)
  1. TACROLIMUS. [Suspect]
     Active Substance: TACROLIMUS
     Indication: STEM CELL TRANSPLANT
     Dosage: UNK UNK, UNKNOWN FREQ.
     Route: 065
  2. MYCOPHENOLATE MOFETIL. [Concomitant]
     Active Substance: MYCOPHENOLATE MOFETIL
     Indication: STEM CELL TRANSPLANT
     Dosage: UNK UNK, UNKNOWN FREQ.
     Route: 065

REACTIONS (17)
  - Acute graft versus host disease in skin [Unknown]
  - Pneumonia [Unknown]
  - Pleurisy [Unknown]
  - Epstein-Barr virus infection [Unknown]
  - Yellow nail syndrome [Recovering/Resolving]
  - Graft versus host disease in eye [Unknown]
  - Diffuse panbronchiolitis [Unknown]
  - Respiratory tract infection [Unknown]
  - Sinusitis [Recovering/Resolving]
  - Restrictive pulmonary disease [Unknown]
  - Bronchial disorder [Unknown]
  - Plasma cell myeloma recurrent [Recovered/Resolved]
  - Pleural effusion [Unknown]
  - Lymphadenopathy mediastinal [Unknown]
  - Myelitis [Recovered/Resolved]
  - Autoimmune haemolytic anaemia [Unknown]
  - Graft versus host disease in gastrointestinal tract [Unknown]
